FAERS Safety Report 9535556 (Version 2)
Quarter: 2013Q4

REPORT INFORMATION
  Report Type: Spontaneous
  Country: US (occurrence: US)
  Receive Date: 20130919
  Receipt Date: 20131111
  Transmission Date: 20140711
  Serious: Yes (Other)
  Sender: FDA-Public Use
  Company Number: US-AMGEN-USASP2013064242

PATIENT
  Age: 53 Year
  Sex: Male

DRUGS (3)
  1. SENSIPAR [Suspect]
     Indication: HYPERPARATHYROIDISM SECONDARY
     Dosage: UNK UNK, QD
     Route: 065
     Dates: start: 201305, end: 201306
  2. PHOSLYRA [Concomitant]
  3. RENVELA [Concomitant]

REACTIONS (1)
  - Vomiting [Recovering/Resolving]
